FAERS Safety Report 9648557 (Version 2)
Quarter: 2013Q4

REPORT INFORMATION
  Report Type: Spontaneous
  Country: FR (occurrence: FR)
  Receive Date: 20131028
  Receipt Date: 20131226
  Transmission Date: 20140711
  Serious: Yes (Hospitalization)
  Sender: FDA-Public Use
  Company Number: FR-SA-2013SA106492

PATIENT
  Age: 58 Year
  Sex: Female

DRUGS (4)
  1. RIFADINE [Suspect]
     Indication: SEPSIS
     Route: 048
     Dates: start: 20130907, end: 20130911
  2. DALACIN [Suspect]
     Indication: SEPSIS
     Route: 048
     Dates: start: 20130907, end: 20130911
  3. BRISTOPEN [Concomitant]
     Indication: SEPSIS
     Dates: start: 20130902, end: 20130907
  4. GENTAMICIN [Concomitant]
     Indication: SEPSIS
     Dates: start: 20130902, end: 20130905

REACTIONS (2)
  - Cholestasis [Recovered/Resolved]
  - Toxic skin eruption [Recovered/Resolved]
